FAERS Safety Report 9260372 (Version 2)
Quarter: 2013Q2

REPORT INFORMATION
  Report Type: Report from Study
  Country: AU (occurrence: AU)
  Receive Date: 20130429
  Receipt Date: 20130514
  Transmission Date: 20140414
  Serious: Yes (Death)
  Sender: FDA-Public Use
  Company Number: PHHY2013AU041544

PATIENT
  Age: 82 Year
  Sex: Female

DRUGS (1)
  1. ACLASTA [Suspect]
     Dosage: UNK UKN, UNK
     Route: 042
     Dates: start: 20120329

REACTIONS (4)
  - Cerebrovascular accident [Fatal]
  - Malaise [Unknown]
  - Nausea [Recovered/Resolved]
  - Dizziness [Recovered/Resolved]
